FAERS Safety Report 23442701 (Version 1)
Quarter: 2024Q1

REPORT INFORMATION
  Report Type: Spontaneous
  Country: US (occurrence: None)
  Receive Date: 20240124
  Receipt Date: 20240124
  Transmission Date: 20240410
  Serious: Yes (Death)
  Sender: FDA-Public Use
  Company Number: None

PATIENT
  Age: 91 Year
  Sex: Female

DRUGS (1)
  1. PIRFENIDONE [Suspect]
     Active Substance: PIRFENIDONE
     Indication: Idiopathic pulmonary fibrosis
     Dosage: 801MG 3 TIMES A DAY BY MOUTH
     Route: 048
     Dates: start: 202209

REACTIONS (2)
  - Death [None]
  - Arthropathy [None]

NARRATIVE: CASE EVENT DATE: 20240118
